FAERS Safety Report 8060063-1 (Version None)
Quarter: 2012Q1

REPORT INFORMATION
  Report Type: 
  Country: None (occurrence: None)
  Receive Date: 20120120
  Receipt Date: 20120117
  Transmission Date: 20120608
  Serious: Yes (Life-Threatening, Hospitalization)
  Sender: FDA-Public Use
  Company Number: FR-GENZYME-CAMP-1002082

PATIENT
  Age: 65 Year
  Sex: Male

DRUGS (2)
  1. CAMPATH [Suspect]
     Indication: PROLYMPHOCYTIC LEUKAEMIA
     Dosage: UNK
     Route: 065
     Dates: start: 20111128
  2. DEXAMETHASONE [Concomitant]
     Indication: PROLYMPHOCYTIC LEUKAEMIA
     Dosage: UNK
     Dates: start: 20111128

REACTIONS (2)
  - HAEMATOMA [None]
  - CEREBRAL VENOUS THROMBOSIS [None]
